FAERS Safety Report 4087962 (Version 5)
Quarter: 2014Q2

REPORT INFORMATION
  Report Type: Report from Study
  Country: CA (occurrence: CA)
  Receive Date: 20040213
  Receipt Date: 20140618
  Transmission Date: 20141212
  Serious: Yes (Other)
  Sender: FDA-Public Use
  Company Number: PHBS2004CA01949

PATIENT
  Age: 36 Year
  Sex: Male

DRUGS (12)
  1. CLOZARIL [Suspect]
     Indication: SCHIZOPHRENIA
     Dosage: 475 MG, PER DAY
     Dates: start: 199708
  2. CLOZARIL [Suspect]
     Dosage: 350 MG, DAILY
     Route: 048
     Dates: start: 19970805
  3. CLOZARIL [Suspect]
     Dosage: UNK
     Dates: start: 200208
  4. EFFEXOR [Concomitant]
     Dosage: 75 MG, DAILY
     Dates: start: 200310
  5. SEROQUEL [Concomitant]
     Dosage: UNK
  6. EPIVAL [Concomitant]
     Dosage: UNK
  7. EFEXOR [Concomitant]
  8. PANTOLOC [Concomitant]
     Dosage: UNK
  9. METFORMIN [Concomitant]
  10. SYNTHROID [Concomitant]
     Dosage: UNK
  11. BISOPROLOL [Concomitant]
     Dosage: UNK
  12. GEMFIBROZIL [Concomitant]
     Dosage: UNK UKN, UNK

REACTIONS (5)
  - Blood triglycerides increased [Not Recovered/Not Resolved]
  - Tachycardia [Not Recovered/Not Resolved]
  - Myoclonus [Not Recovered/Not Resolved]
  - Psychotic disorder [Not Recovered/Not Resolved]
  - Anaemia [Not Recovered/Not Resolved]
